FAERS Safety Report 4751132-X (Version None)
Quarter: 2005Q3

REPORT INFORMATION
  Report Type: 
  Country: None (occurrence: None)
  Receive Date: 20050824
  Receipt Date: 20050812
  Transmission Date: 20060218
  Serious: Yes (Death)
  Sender: FDA-Public Use
  Company Number: JP-BRISTOL-MYERS SQUIBB COMPANY-13074190

PATIENT
  Age: 53 Year
  Sex: Female

DRUGS (3)
  1. TAXOL [Suspect]
     Indication: GASTRIC CANCER
     Route: 042
  2. RANDA [Suspect]
     Indication: GASTRIC CANCER
  3. TS-1 [Suspect]
     Indication: GASTRIC CANCER
     Route: 048

REACTIONS (1)
  - SEPSIS [None]
